FAERS Safety Report 10589529 (Version 5)
Quarter: 2015Q1

REPORT INFORMATION
  Report Type: Spontaneous
  Country: JP (occurrence: None)
  Receive Date: 20141114
  Receipt Date: 20150116
  Transmission Date: 20150720
  Serious: Yes (Death, Hospitalization, Other)
  Sender: FDA-Public Use
  Company Number: ADR-2014-02101

PATIENT
  Age: 67 Year
  Sex: Male
  Weight: 57 kg

DRUGS (1)
  1. GABALON [Suspect]
     Active Substance: BACLOFEN
     Indication: SPINAL CORD DISORDER
     Dates: start: 20131029, end: 20141029

REACTIONS (4)
  - Asphyxia [None]
  - General physical health deterioration [None]
  - Cardiac failure [None]
  - Aspiration [None]

NARRATIVE: CASE EVENT DATE: 20141029
